FAERS Safety Report 4558230-4 (Version None)
Quarter: 2005Q1

REPORT INFORMATION
  Report Type: 
  Country: None (occurrence: None)
  Receive Date: 20050121
  Receipt Date: 20041102
  Transmission Date: 20050727
  Serious: Yes (Death, Hospitalization)
  Sender: FDA-Public Use
  Company Number: PHHO2004ES15531

PATIENT
  Age: 53 Year
  Sex: Male

DRUGS (2)
  1. RAPAMYCIN [Concomitant]
     Dosage: 1.3 MG DAILY
     Dates: start: 20000402, end: 20030419
  2. NEORAL [Suspect]
     Indication: RENAL TRANSPLANT
     Dosage: 75 MG / DAY
     Route: 048
     Dates: start: 20000402, end: 20030423

REACTIONS (5)
  - GASTROINTESTINAL HAEMORRHAGE [None]
  - LEUKOCYTOSIS [None]
  - MENINGITIS MENINGOCOCCAL [None]
  - MENINGITIS PNEUMOCOCCAL [None]
  - STREPTOCOCCAL INFECTION [None]
